FAERS Safety Report 4506902-X (Version None)
Quarter: 2004Q4

REPORT INFORMATION
  Report Type: 
  Country: None (occurrence: None)
  Receive Date: 20041117
  Receipt Date: 20041104
  Transmission Date: 20050328
  Serious: Yes (Hospitalization)
  Sender: FDA-Public Use
  Company Number: 2004088109

PATIENT
  Sex: Female

DRUGS (5)
  1. NEURONTIN [Suspect]
     Indication: NERVE INJURY
     Dosage: ORAL
     Route: 048
     Dates: end: 20030701
  2. ALL OTHER THERAPEUTIC PRODUCTS (ALL OTHER THERAPEUTIC PRODUCTS) [Concomitant]
  3. DYAZIDE [Concomitant]
  4. WARFARIN SODIUM [Concomitant]
  5. OMEPRAZOLE [Concomitant]

REACTIONS (6)
  - ASTHENIA [None]
  - BLOOD PRESSURE INCREASED [None]
  - DIZZINESS [None]
  - FEELING COLD [None]
  - HYPOAESTHESIA [None]
  - PAIN IN EXTREMITY [None]
